FAERS Safety Report 26141182 (Version 1)
Quarter: 2025Q4

REPORT INFORMATION
  Report Type: Report from Study
  Country: EU (occurrence: EU)
  Receive Date: 20251210
  Receipt Date: 20251210
  Transmission Date: 20260117
  Serious: Yes (Hospitalization)
  Sender: BAYER HEALTHCARE PHARMACEUTICALS INC.
  Company Number: None

PATIENT
  Age: 61 Year
  Sex: Male

DRUGS (7)
  1. VARDENAFIL [Suspect]
     Active Substance: VARDENAFIL HYDROCHLORIDE
     Dosage: 20 MG
     Route: 048
     Dates: start: 20251017, end: 20251017
  2. DICLOFENAC SODIUM [Suspect]
     Active Substance: DICLOFENAC SODIUM
     Dosage: UNK
     Route: 048
     Dates: start: 20251017, end: 20251017
  3. ACETAMINOPHEN [Suspect]
     Active Substance: ACETAMINOPHEN
     Dosage: 1000 MG
     Route: 048
     Dates: start: 20251017, end: 20251017
  4. ACETAMINOPHEN\THIOCOLCHICOSIDE [Suspect]
     Active Substance: ACETAMINOPHEN\THIOCOLCHICOSIDE
     Dosage: 500 MG
     Route: 048
     Dates: start: 20251017, end: 20251017
  5. DEFLAZACORT [Suspect]
     Active Substance: DEFLAZACORT
     Dosage: 30 MG
     Route: 048
     Dates: start: 20251017, end: 20251017
  6. BISOPROLOL [Concomitant]
     Active Substance: BISOPROLOL
     Route: 048
  7. ASPIRIN [Concomitant]
     Active Substance: ASPIRIN
     Route: 048

REACTIONS (5)
  - Toxicity to various agents [Recovering/Resolving]
  - Poisoning deliberate [Recovering/Resolving]
  - Sopor [Recovering/Resolving]
  - Vomiting [Recovered/Resolved]
  - Bradycardia [Recovering/Resolving]

NARRATIVE: CASE EVENT DATE: 20251017
